FAERS Safety Report 9667877 (Version 1)
Quarter: 2013Q4

REPORT INFORMATION
  Report Type: Spontaneous
  Country: US (occurrence: US)
  Receive Date: 20131104
  Receipt Date: 20131104
  Transmission Date: 20140711
  Serious: Yes (Hospitalization, Other)
  Sender: FDA-Public Use
  Company Number: US-PFIZER INC-2013312063

PATIENT
  Age: 8 Decade
  Sex: Male

DRUGS (3)
  1. TOVIAZ [Suspect]
     Dosage: UNK
  2. DIGOXIN [Concomitant]
     Dosage: UNK
  3. L-DOPA [Concomitant]
     Dosage: UNK

REACTIONS (3)
  - Fall [Unknown]
  - Cervical vertebral fracture [Unknown]
  - Confusional state [Not Recovered/Not Resolved]
